FAERS Safety Report 15250917 (Version 1)
Quarter: 2018Q3

REPORT INFORMATION
  Report Type: Spontaneous
  Country: US (occurrence: US)
  Receive Date: 20180807
  Receipt Date: 20180807
  Transmission Date: 20181010
  Serious: No
  Sender: FDA-Public Use
  Company Number: US-PERRIGO-18US001195

PATIENT
  Age: 70 Year
  Sex: Female
  Weight: 43.84 kg

DRUGS (3)
  1. MOTRIN IB [Suspect]
     Active Substance: IBUPROFEN
     Indication: PAIN
     Dosage: 2 TABLETS, TID
     Route: 048
     Dates: start: 20180128, end: 20180128
  2. CALCIUM MAGNESIUM + VITAMIN D3 [Concomitant]
     Indication: ROUTINE HEALTH MAINTENANCE
     Dosage: UNK
     Route: 048
     Dates: start: 2016
  3. METOPROLOL. [Concomitant]
     Active Substance: METOPROLOL
     Indication: CARDIAC OPERATION
     Dosage: UNK
     Route: 048
     Dates: start: 2014

REACTIONS (1)
  - Headache [Recovered/Resolved]

NARRATIVE: CASE EVENT DATE: 20180128
